FAERS Safety Report 13445133 (Version 1)
Quarter: 2017Q2

REPORT INFORMATION
  Report Type: Spontaneous
  Country: DE (occurrence: DE)
  Receive Date: 20170414
  Receipt Date: 20170414
  Transmission Date: 20170830
  Serious: Yes (Other)
  Sender: FDA-Public Use
  Company Number: DE-BAUSCH-BL-2017-009974

PATIENT
  Sex: Female

DRUGS (1)
  1. OFLOXACIN-OPHTAL 3 MG/ML AUGENTROPFEN [Suspect]
     Active Substance: OFLOXACIN
     Indication: CONJUNCTIVITIS
     Dosage: FIVE TIMES PER DAY BILATERALLY
     Route: 065
     Dates: start: 20170402, end: 201704

REACTIONS (1)
  - Panophthalmitis [Recovering/Resolving]

NARRATIVE: CASE EVENT DATE: 201704
